FAERS Safety Report 6736692-1 (Version None)
Quarter: 2010Q2

REPORT INFORMATION
  Report Type: 
  Country: None (occurrence: None)
  Receive Date: 20100521
  Receipt Date: 20100511
  Transmission Date: 20101027
  Serious: Yes (Other)
  Sender: FDA-Public Use
  Company Number: PHHY2010US29565

PATIENT
  Sex: Male
  Weight: 90.703 kg

DRUGS (3)
  1. EXELON [Suspect]
     Dosage: 9.5 MG/2
     Route: 062
  2. CARBATROL [Concomitant]
  3. NAMENDA [Concomitant]

REACTIONS (6)
  - COGNITIVE DISORDER [None]
  - DIARRHOEA [None]
  - DRUG DOSE OMISSION [None]
  - GAIT DISTURBANCE [None]
  - NAUSEA [None]
  - VOMITING [None]
